FAERS Safety Report 22122306 (Version 1)
Quarter: 2023Q1

REPORT INFORMATION
  Report Type: Spontaneous
  Country: NO (occurrence: NO)
  Receive Date: 20230321
  Receipt Date: 20230321
  Transmission Date: 20230417
  Serious: Yes (Life-Threatening, Hospitalization, Disabling)
  Sender: FDA-Public Use
  Company Number: None

PATIENT
  Age: 35 Year
  Sex: Female

DRUGS (1)
  1. YAZ [Suspect]
     Active Substance: DROSPIRENONE\ETHINYL ESTRADIOL
     Indication: Contraception
     Dosage: 0,02/3 MG X 1

REACTIONS (3)
  - Pulmonary embolism [Unknown]
  - Cardiac arrest [Unknown]
  - Brain injury [Unknown]

NARRATIVE: CASE EVENT DATE: 20230206
